FAERS Safety Report 9104220 (Version 1)
Quarter: 2013Q1

REPORT INFORMATION
  Report Type: Spontaneous
  Country: US (occurrence: US)
  Receive Date: 20130219
  Receipt Date: 20130219
  Transmission Date: 20140127
  Serious: Yes (Hospitalization, Other)
  Sender: FDA-Public Use
  Company Number: US-RB-049969-13

PATIENT
  Age: 32 Year
  Sex: Female

DRUGS (5)
  1. SUBOXONE FILM [Suspect]
     Dosage: SUBOXONE FILM; 16 MG INCREASED TO 32 MG VARIED
     Route: 060
     Dates: start: 201201, end: 201212
  2. SUBOXONE FILM [Suspect]
     Indication: DRUG DEPENDENCE
     Dosage: SUBOXONE FILM; DOSING DETAILS UNKNOWN
     Route: 060
     Dates: start: 201302
  3. MARIJUANA [Suspect]
     Indication: DRUG ABUSE
     Dosage: DOSING DETAILS UNKNOWN
     Route: 055
  4. HEROIN [Suspect]
     Indication: DRUG DEPENDENCE
     Dosage: DOSING DETAILS UNKNOWN
     Route: 065
     Dates: start: 2012, end: 201301
  5. AMPHETAMINES [Suspect]
     Indication: DRUG ABUSE
     Dosage: DOSING DETAILS UNKNOWN
     Route: 065
     Dates: start: 2012, end: 201301

REACTIONS (12)
  - Drug dependence [Recovered/Resolved]
  - Drug abuse [Not Recovered/Not Resolved]
  - Drug withdrawal syndrome [Recovered/Resolved]
  - Nausea [Recovered/Resolved]
  - Vomiting [Recovered/Resolved]
  - Substance abuse [Not Recovered/Not Resolved]
  - Weight decreased [Not Recovered/Not Resolved]
  - Convulsion [Recovered/Resolved]
  - Euphoric mood [Unknown]
  - Loss of consciousness [Recovered/Resolved]
  - Head injury [Recovered/Resolved]
  - Restless legs syndrome [Not Recovered/Not Resolved]
